FAERS Safety Report 13288921 (Version 1)
Quarter: 2017Q1

REPORT INFORMATION
  Report Type: Spontaneous
  Country: ES (occurrence: ES)
  Receive Date: 20170302
  Receipt Date: 20170302
  Transmission Date: 20170428
  Serious: Yes (Hospitalization)
  Sender: FDA-Public Use
  Company Number: ES-STRIDES ARCOLAB LIMITED-2017SP003527

PATIENT

DRUGS (3)
  1. LEVODOPA/CARBIDOPA [Suspect]
     Active Substance: CARBIDOPA\LEVODOPA
     Dosage: UNK
     Route: 065
  2. LEVODOPA/CARBIDOPA [Suspect]
     Active Substance: CARBIDOPA\LEVODOPA
     Indication: PARKINSON^S DISEASE
     Dosage: 300/75
     Route: 065
  3. PRAMIPEXOLE DIHYDROCHLORIDE. [Suspect]
     Active Substance: PRAMIPEXOLE DIHYDROCHLORIDE
     Indication: PARKINSON^S DISEASE
     Dosage: 2.1 MG, PER DAY
     Route: 065

REACTIONS (9)
  - Crying [Recovered/Resolved]
  - Psychiatric symptom [Recovered/Resolved]
  - Aggression [Recovered/Resolved]
  - Insomnia [Recovered/Resolved]
  - Abnormal dreams [Recovered/Resolved]
  - Jealous delusion [Recovered/Resolved]
  - Intentional self-injury [Recovered/Resolved]
  - Nightmare [Recovered/Resolved]
  - Anxiety [Recovered/Resolved]
